FAERS Safety Report 14270693 (Version 1)
Quarter: 2017Q4

REPORT INFORMATION
  Report Type: Spontaneous
  Country: US (occurrence: US)
  Receive Date: 20171211
  Receipt Date: 20171211
  Transmission Date: 20180321
  Serious: Yes (Other)
  Sender: FDA-Public Use
  Company Number: US-OTSUKA-2017_017920

PATIENT
  Sex: Female

DRUGS (7)
  1. PRISTIQ EXTENDED-RELEASE [Concomitant]
     Active Substance: DESVENLAFAXINE SUCCINATE
     Indication: DEPRESSION
     Route: 065
  2. ABILIFY [Suspect]
     Active Substance: ARIPIPRAZOLE
     Dosage: 1.5 MG, QD
     Route: 065
     Dates: start: 20170815
  3. PRISTIQ EXTENDED-RELEASE [Concomitant]
     Active Substance: DESVENLAFAXINE SUCCINATE
     Indication: DEPRESSION
     Dosage: UNK
     Route: 065
  4. PERCOCET [Concomitant]
     Active Substance: ACETAMINOPHEN\OXYCODONE HYDROCHLORIDE
     Indication: ARACHNOIDITIS
     Dosage: 10/325 MG AS NEEDED
     Route: 065
  5. ABILIFY [Suspect]
     Active Substance: ARIPIPRAZOLE
     Indication: DEPRESSION
     Dosage: 5 MG, QD
     Route: 065
     Dates: start: 2017, end: 2017
  6. MORPHINE [Concomitant]
     Active Substance: MORPHINE
     Indication: ARACHNOIDITIS
     Dosage: AS NEEDED
     Route: 065
  7. FENTANYL. [Concomitant]
     Active Substance: FENTANYL
     Indication: ARACHNOIDITIS
     Dosage: 200 ?G, UNK
     Route: 065

REACTIONS (7)
  - Withdrawal syndrome [Unknown]
  - Malaise [Unknown]
  - Chest pain [Recovered/Resolved]
  - Fatigue [Unknown]
  - Lethargy [Unknown]
  - Abdominal pain upper [Unknown]
  - Respiratory disorder [Recovered/Resolved]
